FAERS Safety Report 8152183 (Version 2)
Quarter: 2013Q4

REPORT INFORMATION
  Report Type: Report from Study
  Country: US (occurrence: US)
  Receive Date: 20110922
  Receipt Date: 20131220
  Transmission Date: 20140711
  Serious: No
  Sender: FDA-Public Use
  Company Number: US-ASTRAZENECA-2010SE56336

PATIENT
  Age: 59 Year
  Sex: Female
  Weight: 90.7 kg

DRUGS (7)
  1. SEROQUEL XR [Suspect]
     Indication: BIPOLAR DISORDER
     Route: 048
     Dates: start: 2007, end: 20101122
  2. SEROQUEL XR [Suspect]
     Indication: DEPRESSION
     Route: 048
     Dates: start: 2007, end: 20101122
  3. WELLBUTRIN SR [Concomitant]
     Indication: DEPRESSION
     Route: 048
  4. LAMICTAL [Concomitant]
     Indication: AFFECTIVE DISORDER
     Route: 048
  5. CELEXA [Concomitant]
     Route: 048
  6. BUSPAR [Concomitant]
     Route: 048
  7. KLONOPINE [Concomitant]
     Route: 048

REACTIONS (4)
  - Insomnia [Not Recovered/Not Resolved]
  - Chronic obstructive pulmonary disease [Unknown]
  - Intentional drug misuse [Unknown]
  - Drug dose omission [Unknown]
